FAERS Safety Report 15902530 (Version 3)
Quarter: 2019Q2

REPORT INFORMATION
  Report Type: Report from Study
  Country: AE (occurrence: AE)
  Receive Date: 20190201
  Receipt Date: 20190515
  Transmission Date: 20190711
  Serious: Yes (Hospitalization, Disabling, Other)
  Sender: FDA-Public Use
  Company Number: PHHY2018AE035479

PATIENT
  Age: 29 Year
  Sex: Female

DRUGS (4)
  1. GILENYA [Suspect]
     Active Substance: FINGOLIMOD HYDROCHLORIDE
     Indication: MULTIPLE SCLEROSIS
     Dosage: 0.5 MG, QD
     Route: 048
     Dates: start: 20180401, end: 20181209
  2. GILENYA [Interacting]
     Active Substance: FINGOLIMOD HYDROCHLORIDE
     Dosage: 0.5 MG, QD
     Route: 048
     Dates: start: 20181220
  3. IMURAN [Interacting]
     Active Substance: AZATHIOPRINE
     Indication: PRODUCT USED FOR UNKNOWN INDICATION
     Dosage: UNK
     Route: 065
  4. GILENYA [Interacting]
     Active Substance: FINGOLIMOD HYDROCHLORIDE
     Dosage: 0.5 MG, QD
     Route: 048
     Dates: start: 20180401, end: 201904

REACTIONS (26)
  - Multiple sclerosis relapse [Not Recovered/Not Resolved]
  - Paresis [Unknown]
  - Blood calcium decreased [Unknown]
  - Balance disorder [Not Recovered/Not Resolved]
  - Blindness [Recovered/Resolved]
  - Hypoaesthesia oral [Recovered/Resolved]
  - Gait inability [Not Recovered/Not Resolved]
  - Dry mouth [Recovering/Resolving]
  - Hypokinesia [Not Recovered/Not Resolved]
  - Vomiting [Recovered/Resolved]
  - Diplopia [Not Recovered/Not Resolved]
  - Hypoaesthesia [Recovering/Resolving]
  - Burning sensation [Not Recovered/Not Resolved]
  - Dyschromatopsia [Unknown]
  - Dizziness [Recovering/Resolving]
  - Pain [Recovering/Resolving]
  - Headache [Not Recovered/Not Resolved]
  - Muscle spasticity [Unknown]
  - Drug interaction [Recovered/Resolved]
  - Pain in extremity [Not Recovered/Not Resolved]
  - Coordination abnormal [Unknown]
  - Ataxia [Unknown]
  - Paraesthesia oral [Recovering/Resolving]
  - Hypotension [Recovered/Resolved]
  - Hypoaesthesia [Not Recovered/Not Resolved]
  - Anaemia [Unknown]

NARRATIVE: CASE EVENT DATE: 20180105
